FAERS Safety Report 5751283-7 (Version None)
Quarter: 2008Q2

REPORT INFORMATION
  Report Type: 
  Country: None (occurrence: None)
  Receive Date: 20080528
  Receipt Date: 20080516
  Transmission Date: 20081010
  Serious: Yes (Other)
  Sender: FDA-Public Use
  Company Number: US-PFIZER INC-2008000800

PATIENT
  Sex: Male
  Weight: 87.1 kg

DRUGS (23)
  1. CHANTIX [Suspect]
     Indication: SMOKING CESSATION THERAPY
  2. EFFEXOR XR [Interacting]
     Indication: DEPRESSION
     Dosage: DAILY DOSE:375MG
  3. CARBAMAZEPINE [Interacting]
     Indication: EPILEPSY
     Dosage: DAILY DOSE:1600MG
     Route: 048
  4. KLONOPIN [Interacting]
     Indication: EPILEPSY
  5. LISINOPRIL [Concomitant]
  6. LUNESTA [Concomitant]
  7. BACLOFEN [Concomitant]
  8. AVODART [Concomitant]
  9. CENTRUM SILVER [Concomitant]
  10. ACETYLSALICYLIC ACID SRT [Concomitant]
  11. OYSTER SHELL CALCIUM [Concomitant]
  12. FOLIC ACID [Concomitant]
  13. TRAZODONE HCL [Concomitant]
     Indication: DEPRESSION
  14. ALBUTEROL [Concomitant]
     Route: 055
  15. CORTICOSTEROIDS [Concomitant]
     Route: 055
  16. VICODIN [Concomitant]
  17. TYLENOL [Concomitant]
  18. ADVIL [Concomitant]
  19. VITAMIN CAP [Concomitant]
  20. AVELOX [Concomitant]
  21. REBIF [Concomitant]
     Indication: MULTIPLE SCLEROSIS
  22. BUSPAR [Concomitant]
     Indication: DEPRESSION
  23. ANTIDEPRESSANTS [Concomitant]

REACTIONS (9)
  - BEDRIDDEN [None]
  - BLOOD PRESSURE DECREASED [None]
  - CONCUSSION [None]
  - CONVULSION [None]
  - CONVULSIVE THRESHOLD LOWERED [None]
  - DRUG INTERACTION [None]
  - EYE INJURY [None]
  - FALL [None]
  - PNEUMONIA [None]
